FAERS Safety Report 4401220-2 (Version None)
Quarter: 2004Q3

REPORT INFORMATION
  Report Type: 
  Country: None (occurrence: None)
  Receive Date: 20040907
  Receipt Date: 20040105
  Transmission Date: 20050211
  Serious: No
  Sender: FDA-Public Use
  Company Number: US-BRISTOL-MYERS SQUIBB COMPANY-12468872

PATIENT
  Age: 75 Year
  Sex: Female
  Weight: 56 kg

DRUGS (9)
  1. COUMADIN [Suspect]
     Dosage: 2MG SIX DAYS/WEEK 3MG ONE DAY/WEEK
     Route: 048
     Dates: start: 20030901
  2. PRAVACHOL [Concomitant]
  3. PREDNISONE [Concomitant]
  4. ACTONEL [Concomitant]
  5. NEXIUM [Concomitant]
  6. CYTOTEC [Concomitant]
  7. POTASSIUM [Concomitant]
  8. LASIX [Concomitant]
  9. LOTREL [Concomitant]

REACTIONS (2)
  - ALOPECIA [None]
  - INTERNATIONAL NORMALISED RATIO ABNORMAL [None]
